FAERS Safety Report 8019344-X (Version None)
Quarter: 2012Q1

REPORT INFORMATION
  Report Type: 
  Country: None (occurrence: None)
  Receive Date: 20120103
  Receipt Date: 20111223
  Transmission Date: 20120608
  Serious: Yes (Other)
  Sender: FDA-Public Use
  Company Number: US-ACTELION-A-US2011-54463

PATIENT

DRUGS (4)
  1. OXYGEN [Concomitant]
  2. COUMADIN [Concomitant]
  3. CALCIUM CHANNEL BLOCKERS [Concomitant]
  4. TRACLEER [Suspect]
     Indication: PULMONARY ARTERIAL HYPERTENSION
     Dosage: UNK
     Route: 048
     Dates: start: 20020916

REACTIONS (6)
  - ECCHYMOSIS [None]
  - EPISTAXIS [None]
  - PAIN [None]
  - ERYTHEMA [None]
  - SWELLING [None]
  - HAEMORRHAGE [None]
